FAERS Safety Report 5052141-6 (Version None)
Quarter: 2006Q3

REPORT INFORMATION
  Report Type: 
  Country: None (occurrence: None)
  Receive Date: 20060712
  Receipt Date: 20060712
  Transmission Date: 20061208
  Serious: Yes (Life-Threatening, Hospitalization)
  Sender: FDA-Public Use
  Company Number: None

PATIENT
  Age: 82 Year
  Sex: Male

DRUGS (3)
  1. TEQUIN [Suspect]
     Indication: FOOT FRACTURE
     Dosage: 400 MG DAILY X14 DAYS IV
     Route: 042
     Dates: start: 20060124, end: 20060210
  2. TEQUIN [Suspect]
     Indication: STRESS FRACTURE
     Dosage: 400 MG DAILY X14 DAYS IV
     Route: 042
     Dates: start: 20060124, end: 20060210
  3. TEQUIN [Suspect]
     Indication: STRESS FRACTURE
     Dosage: 400 MG DAILY X 40 DAYS PO
     Route: 048
     Dates: start: 20060211, end: 20060410

REACTIONS (1)
  - HYPERGLYCAEMIA [None]
